FAERS Safety Report 8998172 (Version 3)
Quarter: 2013Q2

REPORT INFORMATION
  Report Type: Report from Study
  Country: US (occurrence: US)
  Receive Date: 20130104
  Receipt Date: 20130419
  Transmission Date: 20140414
  Serious: Yes (Other)
  Sender: FDA-Public Use
  Company Number: US-US-EMD SERONO, INC.-7174795

PATIENT
  Age: 50 Year
  Sex: Female

DRUGS (1)
  1. REBIF [Suspect]
     Indication: PRODUCT USED FOR UNKNOWN INDICATION
     Route: 058
     Dates: start: 20121009, end: 201303

REACTIONS (5)
  - Grand mal convulsion [Recovered/Resolved]
  - Dysphemia [Not Recovered/Not Resolved]
  - Blood potassium decreased [Unknown]
  - Muscle spasms [Not Recovered/Not Resolved]
  - Injection site erythema [Not Recovered/Not Resolved]
